FAERS Safety Report 6122009-2 (Version None)
Quarter: 2009Q1

REPORT INFORMATION
  Report Type: 
  Country: None (occurrence: None)
  Receive Date: 20090316
  Receipt Date: 20090303
  Transmission Date: 20090719
  Serious: Yes (Hospitalization)
  Sender: FDA-Public Use
  Company Number: CHPA2009US03949

PATIENT
  Age: 66 Year
  Sex: Male

DRUGS (1)
  1. EXCEDRIN (MIGRAINE) [Suspect]
     Indication: HEADACHE
     Dosage: 2 DF, ONCE/SINGLE, ORAL
     Route: 048
     Dates: start: 20090101, end: 20090101

REACTIONS (4)
  - CEREBROVASCULAR ACCIDENT [None]
  - EAR PAIN [None]
  - HYPERTENSION [None]
  - THROAT IRRITATION [None]
